FAERS Safety Report 7582764-1 (Version None)
Quarter: 2011Q2

REPORT INFORMATION
  Report Type: 
  Country: None (occurrence: None)
  Receive Date: 20110630
  Receipt Date: 20110627
  Transmission Date: 20111010
  Serious: Yes (Hospitalization)
  Sender: FDA-Public Use
  Company Number: HR-PFIZER INC-2011142121

PATIENT
  Age: 76 Year
  Sex: Male
  Weight: 80 kg

DRUGS (4)
  1. BYOL [Concomitant]
     Dosage: 5 MG, 1X/DAY
     Route: 048
     Dates: start: 20090101
  2. CORTEF [Concomitant]
     Dosage: UNK MG, 3X/DAY
     Route: 048
     Dates: start: 20090101
  3. REPAGLINIDE [Concomitant]
     Dosage: 4 MG, 3X/DAY
     Route: 048
     Dates: start: 20090101
  4. SUTENT [Suspect]
     Indication: RENAL CANCER
     Dosage: 50 MG, 1X/DAY
     Route: 048
     Dates: start: 20110512, end: 20110520

REACTIONS (14)
  - VOMITING [None]
  - GAIT DISTURBANCE [None]
  - NAUSEA [None]
  - FATIGUE [None]
  - ARTHRALGIA [None]
  - ASTHENIA [None]
  - SYNCOPE [None]
  - URINE ODOUR ABNORMAL [None]
  - PARAESTHESIA [None]
  - MUSCULOSKELETAL STIFFNESS [None]
  - MYALGIA [None]
  - DECREASED APPETITE [None]
  - PERIPHERAL COLDNESS [None]
  - SWEAT GLAND DISORDER [None]
